FAERS Safety Report 21053809 (Version 1)
Quarter: 2022Q3

REPORT INFORMATION
  Report Type: Report from Study
  Country: PL (occurrence: PL)
  Receive Date: 20220707
  Receipt Date: 20220707
  Transmission Date: 20221027
  Serious: Yes (Death)
  Sender: FDA-Public Use
  Company Number: PL-Merck Healthcare KGaA-9314269

PATIENT
  Age: 68 Year
  Sex: Male

DRUGS (5)
  1. FLUOROURACIL [Suspect]
     Active Substance: FLUOROURACIL
     Indication: Colorectal cancer metastatic
     Dosage: UNK UNK, BIWEEKLY (198.0)
     Route: 065
     Dates: start: 20181204, end: 20210808
  2. CETUXIMAB [Suspect]
     Active Substance: CETUXIMAB
     Indication: Colorectal cancer metastatic
     Dosage: 619 MILLIGRAM/SQ. METER
     Route: 065
     Dates: start: 20210803, end: 20210803
  3. CETUXIMAB [Suspect]
     Active Substance: CETUXIMAB
     Dosage: 660 MILLIGRAM/SQ. METER
     Route: 065
     Dates: start: 20181204, end: 20181204
  4. LEUCOVORIN [Suspect]
     Active Substance: LEUCOVORIN
     Indication: Colorectal cancer metastatic
     Dosage: UNK UNK, BIWEEKLY (247.5)
     Route: 065
     Dates: start: 20181204, end: 20210808
  5. IRINOTECAN [Suspect]
     Active Substance: IRINOTECAN
     Indication: Colorectal cancer metastatic
     Dosage: UNK UNK, BIWEEKLY (222.75)
     Route: 065
     Dates: start: 20181204, end: 20210808

REACTIONS (2)
  - Death [Fatal]
  - Off label use [Unknown]

NARRATIVE: CASE EVENT DATE: 20210920
